FAERS Safety Report 17886285 (Version 1)
Quarter: 2020Q2

REPORT INFORMATION
  Report Type: Report from Study
  Country: IT (occurrence: IT)
  Receive Date: 20200611
  Receipt Date: 20200611
  Transmission Date: 20200714
  Serious: Yes (Other)
  Sender: FDA-Public Use
  Company Number: IT-JNJFOC-20200419948

PATIENT
  Age: 79 Year
  Sex: Male

DRUGS (6)
  1. PROPAFENONE. [Suspect]
     Active Substance: PROPAFENONE
     Indication: ARRHYTHMIA
     Dosage: UNK
  2. ENALAPRIL [Concomitant]
     Active Substance: ENALAPRIL
  3. XARELTO [Suspect]
     Active Substance: RIVAROXABAN
     Indication: ATRIAL FIBRILLATION
     Dosage: 20 MG, QD
     Route: 048
     Dates: start: 20191011
  4. SOTALOL. [Suspect]
     Active Substance: SOTALOL
     Indication: ARRHYTHMIA
  5. ZOLPIDEM TARTRATE. [Concomitant]
     Active Substance: ZOLPIDEM TARTRATE
  6. BROMAZEPAM [Concomitant]
     Active Substance: BROMAZEPAM
     Dosage: UNK

REACTIONS (2)
  - Malaise [Recovered/Resolved]
  - Atrial fibrillation [Recovered/Resolved]

NARRATIVE: CASE EVENT DATE: 20200110
